FAERS Safety Report 6810917-6 (Version None)
Quarter: 2010Q2

REPORT INFORMATION
  Report Type: 
  Country: None (occurrence: None)
  Receive Date: 20100630
  Receipt Date: 20080929
  Transmission Date: 20101027
  Serious: No
  Sender: FDA-Public Use
  Company Number: US-PFIZER INC-2008071580

PATIENT
  Sex: Female
  Weight: 72.727 kg

DRUGS (6)
  1. ESTRING [Suspect]
     Indication: VAGINAL DISCHARGE
     Dates: start: 20080201
  2. ESTRING [Suspect]
     Indication: VULVOVAGINAL PRURITUS
  3. ALL OTHER THERAPEUTIC PRODUCTS [Concomitant]
  4. ESTROGENS [Concomitant]
  5. ESTRADIOL [Concomitant]
  6. PROMETRIUM [Concomitant]

REACTIONS (1)
  - DRUG INEFFECTIVE [None]
